FAERS Safety Report 8395131-8 (Version None)
Quarter: 2012Q2

REPORT INFORMATION
  Report Type: 
  Country: None (occurrence: None)
  Receive Date: 20120530
  Receipt Date: 20120521
  Transmission Date: 20120825
  Serious: Yes (Hospitalization)
  Sender: FDA-Public Use
  Company Number: JP-VERTEX PHARMACEUTICALS INC.-AE-2012-007729

PATIENT
  Age: 56 Year
  Sex: Male

DRUGS (12)
  1. BASEN [Concomitant]
     Route: 048
  2. TELAVIC (TELAPREVIR) [Suspect]
     Indication: HEPATITIS C
     Route: 048
     Dates: start: 20120327, end: 20120408
  3. RIBAVIRIN [Concomitant]
     Indication: HEPATITIS C
     Route: 048
     Dates: start: 20120327, end: 20120408
  4. RIBAVIRIN [Concomitant]
     Route: 048
     Dates: start: 20120501
  5. PEGINTERFERON ALFA-2B [Concomitant]
     Route: 051
     Dates: start: 20120417, end: 20120501
  6. LOSARTAN POTASSIUM [Concomitant]
     Route: 048
  7. PEGINTERFERON ALFA-2B [Concomitant]
     Indication: HEPATITIS C
     Route: 051
     Dates: start: 20120327, end: 20120410
  8. AMARYL [Concomitant]
     Route: 048
  9. PEGINTERFERON ALFA-2B [Concomitant]
     Route: 051
     Dates: start: 20120508
  10. NORVASC [Concomitant]
     Route: 048
  11. PRIMPERAN TAB [Concomitant]
     Route: 048
     Dates: start: 20120410
  12. LANSOPRAZOLE [Concomitant]
     Route: 048

REACTIONS (2)
  - URINARY TRACT INFECTION [None]
  - HAEMATURIA [None]
